FAERS Safety Report 5684867-5 (Version None)
Quarter: 2008Q1

REPORT INFORMATION
  Report Type: 
  Country: None (occurrence: None)
  Receive Date: 20080328
  Receipt Date: 19930629
  Transmission Date: 20080703
  Serious: Yes (Death)
  Sender: FDA-Public Use
  Company Number: CA-ROCHE-25111

PATIENT
  Age: 76 Year
  Sex: Female
  Weight: 54.5 kg

DRUGS (1)
  1. TICLID [Suspect]
     Route: 048
     Dates: start: 19910813, end: 19910909

REACTIONS (1)
  - DEATH [None]
